FAERS Safety Report 8466785-2 (Version None)
Quarter: 2012Q2

REPORT INFORMATION
  Report Type: 
  Country: None (occurrence: None)
  Receive Date: 20120619
  Receipt Date: 20120615
  Transmission Date: 20120825
  Serious: Yes (Hospitalization, Other)
  Sender: FDA-Public Use
  Company Number: ADR-2011-11611

PATIENT
  Age: 12 Year
  Sex: Male

DRUGS (1)
  1. BACLOFEN [Suspect]
     Indication: CEREBRAL PALSY
     Dosage: 631.6 MCG/DAY
     Route: 037

REACTIONS (5)
  - ACTIVITIES OF DAILY LIVING IMPAIRED [None]
  - DEVICE OCCLUSION [None]
  - IRRITABILITY [None]
  - HYPERTONIA [None]
  - DRUG WITHDRAWAL SYNDROME [None]
